FAERS Safety Report 8573455-9 (Version None)
Quarter: 2012Q3

REPORT INFORMATION
  Report Type: 
  Country: None (occurrence: None)
  Receive Date: 20120806
  Receipt Date: 20120723
  Transmission Date: 20120928
  Serious: No
  Sender: FDA-Public Use
  Company Number: US-ASTRAZENECA-2012SE51981

PATIENT
  Age: 37 Year
  Sex: Female
  Weight: 59 kg

DRUGS (11)
  1. MULTI-VITAMINS [Concomitant]
  2. SEROQUEL [Suspect]
     Indication: SLEEP DISORDER
     Route: 048
     Dates: start: 20120601, end: 20120721
  3. TRAZODONE HYDROCHLORIDE [Suspect]
     Indication: SLEEP DISORDER
     Route: 065
  4. SALSALATE [Concomitant]
  5. WELLBUTRIN [Concomitant]
  6. SEROQUEL [Suspect]
     Indication: POST-TRAUMATIC STRESS DISORDER
     Route: 048
     Dates: start: 20120601, end: 20120721
  7. TRAZODONE HYDROCHLORIDE [Suspect]
     Indication: POST-TRAUMATIC STRESS DISORDER
     Route: 065
  8. IRON [Concomitant]
  9. VITAMIN D [Concomitant]
  10. PEPTIDASE [Concomitant]
     Indication: GASTROOESOPHAGEAL REFLUX DISEASE
  11. TRAMADOL HCL [Concomitant]

REACTIONS (8)
  - OFF LABEL USE [None]
  - WOUND INFECTION BACTERIAL [None]
  - DRUG DOSE OMISSION [None]
  - SLEEP TERROR [None]
  - LIMB INJURY [None]
  - PAIN [None]
  - HERPES ZOSTER [None]
  - DRUG EFFECT DECREASED [None]
